FAERS Safety Report 12613078 (Version 2)
Quarter: 2016Q3

REPORT INFORMATION
  Report Type: Spontaneous
  Country: US (occurrence: US)
  Receive Date: 20160802
  Receipt Date: 20160814
  Transmission Date: 20161109
  Serious: Yes (Other)
  Sender: FDA-Public Use
  Company Number: US-AMGEN-USASP2016097170

PATIENT
  Age: 42 Year
  Sex: Female
  Weight: 99.79 kg

DRUGS (9)
  1. LYRICA [Suspect]
     Active Substance: PREGABALIN
     Dosage: 50 MG, BID
     Route: 065
  2. MORPHINE [Concomitant]
     Active Substance: MORPHINE
     Dosage: UNK
  3. LYRICA [Suspect]
     Active Substance: PREGABALIN
     Indication: PRODUCT USED FOR UNKNOWN INDICATION
     Dosage: 150 MG, BID
     Route: 065
     Dates: start: 201408
  4. MIRENA [Concomitant]
     Active Substance: LEVONORGESTREL
     Dosage: UNK
     Route: 015
  5. LYRICA [Suspect]
     Active Substance: PREGABALIN
     Dosage: 75 MG, BID
     Route: 065
  6. AUGMENTIN [Suspect]
     Active Substance: AMOXICILLIN\CLAVULANATE POTASSIUM
     Indication: PRODUCT USED FOR UNKNOWN INDICATION
     Dosage: 875 MG, UNK
     Route: 048
     Dates: start: 20160628
  7. AUGMENTIN [Suspect]
     Active Substance: AMOXICILLIN\CLAVULANATE POTASSIUM
     Dosage: 500 MG, BID
     Route: 065
  8. ENBREL [Suspect]
     Active Substance: ETANERCEPT
     Indication: ANKYLOSING SPONDYLITIS
     Dosage: 50 MG, QWK
     Route: 058
     Dates: start: 2013
  9. LYRICA [Suspect]
     Active Substance: PREGABALIN
     Dosage: 25 MG, UNK
     Route: 065

REACTIONS (32)
  - Fibrin D dimer increased [Unknown]
  - Pyrexia [Unknown]
  - Arthralgia [Unknown]
  - Lichen sclerosus [Unknown]
  - Mental status changes [Unknown]
  - Feeling abnormal [Unknown]
  - Localised infection [Unknown]
  - Carbon dioxide decreased [Unknown]
  - Asthenia [Unknown]
  - Dyspnoea [Unknown]
  - Chest pain [Recovering/Resolving]
  - Blood sodium decreased [Recovered/Resolved]
  - Tachyarrhythmia [Unknown]
  - Arthritis [Unknown]
  - Obesity [Unknown]
  - Paraesthesia [Recovering/Resolving]
  - Burning sensation [Recovering/Resolving]
  - Dizziness [Unknown]
  - Vision blurred [Recovered/Resolved]
  - Orthostatic hypotension [Recovered/Resolved]
  - Panic attack [Unknown]
  - Palpitations [Unknown]
  - Migraine [Unknown]
  - Temporomandibular joint syndrome [Not Recovered/Not Resolved]
  - Myofascial pain syndrome [Unknown]
  - Thyroid cancer [Unknown]
  - Dehydration [Recovered/Resolved]
  - Autoimmune thyroiditis [Unknown]
  - Blood chloride abnormal [Unknown]
  - Conduction disorder [Unknown]
  - Chest discomfort [Recovering/Resolving]
  - Pain [Unknown]

NARRATIVE: CASE EVENT DATE: 201607
